FAERS Safety Report 11428671 (Version 1)
Quarter: 2015Q3

REPORT INFORMATION
  Report Type: Spontaneous
  Country: US (occurrence: None)
  Receive Date: 20150827
  Receipt Date: 20150827
  Transmission Date: 20151125
  Serious: Yes (Hospitalization)
  Sender: FDA-Public Use
  Company Number: None

PATIENT
  Age: 58 Year
  Sex: Female
  Weight: 81.65 kg

DRUGS (5)
  1. AMILODIPINE [Concomitant]
  2. NATURTHROID [Concomitant]
  3. OMNIPAQUE [Suspect]
     Active Substance: IOHEXOL
     Indication: COMPUTERISED TOMOGRAM
     Dosage: 100 ONCE FOR PROCEDURE INTO A VEIN
     Route: 042
  4. PREMARIN [Concomitant]
     Active Substance: ESTROGENS, CONJUGATED
  5. OMNIPAQUE [Suspect]
     Active Substance: IOHEXOL
     Indication: SCAN WITH CONTRAST
     Dosage: 100 ONCE FOR PROCEDURE INTO A VEIN
     Route: 042

REACTIONS (5)
  - Pain in extremity [None]
  - Documented hypersensitivity to administered product [None]
  - Neuropathy peripheral [None]
  - Pharyngeal oedema [None]
  - Contrast media allergy [None]

NARRATIVE: CASE EVENT DATE: 20140909
